FAERS Safety Report 8100672-4 (Version None)
Quarter: 2012Q1

REPORT INFORMATION
  Report Type: 
  Country: None (occurrence: None)
  Receive Date: 20120129
  Receipt Date: 20111202
  Transmission Date: 20120608
  Serious: No
  Sender: FDA-Public Use
  Company Number: US-ABBOTT-11P-163-0717485-00

PATIENT
  Age: 35 Year
  Sex: Female

DRUGS (5)
  1. HUMIRA [Suspect]
     Indication: PSORIASIS
     Dosage: INITIAL DOSE
     Dates: start: 20110407, end: 20110407
  2. HUMIRA [Suspect]
  3. DOVONEX [Concomitant]
     Indication: PSORIASIS
     Dosage: DAILY
     Route: 061
  4. CLOBETASOL 0.05% [Concomitant]
     Indication: PSORIASIS
     Dosage: PRN
     Route: 061
  5. CUTAR [Concomitant]
     Indication: PSORIASIS
     Dosage: NON STEROID TO PUT IN BATH PRN

REACTIONS (9)
  - DRUG ADMINISTRATION ERROR [None]
  - PANIC ATTACK [None]
  - ABDOMINAL DISCOMFORT [None]
  - HEART RATE INCREASED [None]
  - ANXIETY [None]
  - ARTHROPOD STING [None]
  - INJECTION SITE PAIN [None]
  - FEAR OF DEATH [None]
  - PAIN [None]
